FAERS Safety Report 20564814 (Version 1)
Quarter: 2022Q1

REPORT INFORMATION
  Report Type: Spontaneous
  Country: US (occurrence: US)
  Receive Date: 20220308
  Receipt Date: 20220308
  Transmission Date: 20220423
  Serious: Yes (Other)
  Sender: FDA-Public Use
  Company Number: US-ALLERGAN-2134133US

PATIENT
  Age: 73 Year
  Sex: Female

DRUGS (1)
  1. ESTRADIOL [Suspect]
     Active Substance: ESTRADIOL
     Indication: Menopause
     Dosage: 1 G, BI-WEEKLY
     Route: 067
     Dates: start: 2020, end: 20211004

REACTIONS (7)
  - Cerebrovascular accident [Unknown]
  - Feeling abnormal [Recovering/Resolving]
  - Hypoaesthesia [Unknown]
  - Agitation [Unknown]
  - Paraesthesia [Recovering/Resolving]
  - Hypertension [Unknown]
  - Cardiac disorder [Unknown]

NARRATIVE: CASE EVENT DATE: 20211005
